FAERS Safety Report 10009811 (Version 1)
Quarter: 2014Q1

REPORT INFORMATION
  Report Type: Spontaneous
  Country: US (occurrence: US)
  Receive Date: 20140312
  Receipt Date: 20140312
  Transmission Date: 20141002
  Serious: No
  Sender: FDA-Public Use
  Company Number: US-INCYTE CORPORATION-2012IN002564

PATIENT
  Sex: 0

DRUGS (5)
  1. JAKAFI [Suspect]
     Indication: MYELOFIBROSIS
     Dosage: 20-25-20
  2. JAKAFI [Suspect]
     Dosage: 15 MG, BID
  3. ALLOPURINOL [Concomitant]
  4. BABY ASPIRIN [Concomitant]
  5. OMEPRAZOLE [Concomitant]

REACTIONS (4)
  - Splenomegaly [Unknown]
  - Dizziness [Unknown]
  - White blood cell count decreased [Unknown]
  - Red blood cell count decreased [Unknown]
